FAERS Safety Report 7419064-6 (Version None)
Quarter: 2011Q2

REPORT INFORMATION
  Report Type: 
  Country: None (occurrence: None)
  Receive Date: 20110415
  Receipt Date: 20110405
  Transmission Date: 20111010
  Serious: Yes (Other)
  Sender: FDA-Public Use
  Company Number: US-CEPHALON-2011001668

PATIENT
  Sex: Male
  Weight: 74 kg

DRUGS (4)
  1. DEPAKOTE [Concomitant]
     Dates: start: 19760101
  2. DECADRON [Concomitant]
  3. VICODIN [Concomitant]
     Dates: end: 20110403
  4. FENTORA [Suspect]
     Indication: BREAKTHROUGH PAIN
     Route: 002
     Dates: start: 20110404

REACTIONS (2)
  - DRUG INEFFECTIVE [None]
  - DRUG PRESCRIBING ERROR [None]
